FAERS Safety Report 8621685-X (Version None)
Quarter: 2012Q3

REPORT INFORMATION
  Report Type: 
  Country: None (occurrence: None)
  Receive Date: 20120825
  Receipt Date: 20120820
  Transmission Date: 20120928
  Serious: Yes (Other)
  Sender: FDA-Public Use
  Company Number: US-TEVA-355302USA

PATIENT
  Age: 53 Year
  Sex: Male

DRUGS (1)
  1. METRONIDAZOLE [Suspect]
     Indication: NON-ALCOHOLIC STEATOHEPATITIS
     Route: 065

REACTIONS (2)
  - OROMANDIBULAR DYSTONIA [None]
  - ENCEPHALOPATHY [None]
